FAERS Safety Report 10588713 (Version 2)
Quarter: 2014Q4

REPORT INFORMATION
  Report Type: Report from Study
  Country: US (occurrence: US)
  Receive Date: 20141117
  Receipt Date: 20141117
  Transmission Date: 20150529
  Serious: Yes (Life-Threatening, Hospitalization)
  Sender: FDA-Public Use
  Company Number: US-GLAXOSMITHKLINE-Z0010852A

PATIENT
  Age: 67 Year
  Weight: 69.4 kg

DRUGS (3)
  1. HYDROCODONE BITARTRATE/APAP [Concomitant]
     Indication: PAIN
     Route: 048
     Dates: start: 20110730
  2. TRAMETINIB [Suspect]
     Active Substance: TRAMETINIB
     Indication: BREAST CANCER
     Route: 048
     Dates: start: 20110609, end: 20110727
  3. HYDROCODONE/ACETAMINOPHEN [Concomitant]
     Active Substance: ACETAMINOPHEN\HYDROCODONE
     Indication: PAIN
     Route: 048
     Dates: start: 20110730

REACTIONS (1)
  - Left ventricular dysfunction [Recovered/Resolved]

NARRATIVE: CASE EVENT DATE: 20110728
